FAERS Safety Report 16027583 (Version 2)
Quarter: 2019Q1

REPORT INFORMATION
  Report Type: Spontaneous
  Country: BE (occurrence: BE)
  Receive Date: 20190304
  Receipt Date: 20190314
  Transmission Date: 20190418
  Serious: Yes (Other)
  Sender: FDA-Public Use
  Company Number: BE-OCTA-GAM05219BE

PATIENT
  Age: 73 Year
  Sex: Male

DRUGS (1)
  1. OCTAGAM IMMUNE GLOBULIN (HUMAN) [Suspect]
     Active Substance: HUMAN IMMUNOGLOBULIN G
     Indication: HAEMOPHAGOCYTIC LYMPHOHISTIOCYTOSIS
     Route: 042
     Dates: start: 20190214

REACTIONS (2)
  - Hepatitis B core antibody positive [Unknown]
  - Hepatitis B surface antibody positive [Unknown]

NARRATIVE: CASE EVENT DATE: 20190218
